FAERS Safety Report 4917793-7 (Version None)
Quarter: 2006Q1

REPORT INFORMATION
  Report Type: 
  Country: None (occurrence: None)
  Receive Date: 20060215
  Receipt Date: 20060207
  Transmission Date: 20060701
  Serious: Yes (Hospitalization)
  Sender: FDA-Public Use
  Company Number: 2006019296

PATIENT
  Age: 80 Year
  Sex: Female
  Weight: 81.6475 kg

DRUGS (5)
  1. LIPITOR [Suspect]
     Indication: BLOOD CHOLESTEROL INCREASED
     Dosage: 10 MG (10 MG, 1 IN 1D
  2. TOPROL-XL [Concomitant]
  3. LOTREL (AMLOEIPINE, BENAZEPRIL HYDROCHLORIDE) [Concomitant]
  4. LASIX [Concomitant]
  5. NEXIUM [Concomitant]

REACTIONS (4)
  - BACK PAIN [None]
  - BLOOD URINE PRESENT [None]
  - MYALGIA [None]
  - RENAL DISORDER [None]
